FAERS Safety Report 7027078-3 (Version None)
Quarter: 2010Q4

REPORT INFORMATION
  Report Type: 
  Country: None (occurrence: None)
  Receive Date: 20101004
  Receipt Date: 20100924
  Transmission Date: 20110411
  Serious: Yes (Hospitalization, Disabling, Other)
  Sender: FDA-Public Use
  Company Number: US-BAYER-200840249NA

PATIENT
  Age: 71 Year
  Sex: Female
  Weight: 76 kg

DRUGS (6)
  1. SORAFENIB [Suspect]
     Indication: BREAST CANCER METASTATIC
     Dosage: TOTAL DAILY DOSE: 800 MG  UNIT DOSE: 200 MG
     Route: 048
     Dates: start: 20081103, end: 20081130
  2. PACLITAXEL [Suspect]
     Indication: BREAST CANCER METASTATIC
     Dosage: UNIT DOSE: 90 MG/M2
     Route: 042
     Dates: start: 20081103, end: 20081117
  3. DILAUDID [Concomitant]
     Indication: PAIN
     Dosage: TOTAL DAILY DOSE: 16 MG
     Route: 048
     Dates: start: 20081024
  4. COMPAZINE [Concomitant]
     Indication: NAUSEA
     Dosage: TOTAL DAILY DOSE: 40 MG
     Route: 048
     Dates: start: 20081103
  5. SINGULAIR [Concomitant]
     Indication: ASTHMA
     Dosage: TOTAL DAILY DOSE: 10 MG
     Route: 048
  6. ADVAIR DISKUS 100/50 [Concomitant]
     Indication: ASTHMA
     Dosage: INHALATION

REACTIONS (2)
  - DEEP VEIN THROMBOSIS [None]
  - PULMONARY EMBOLISM [None]
